FAERS Safety Report 22075154 (Version 3)
Quarter: 2023Q1

REPORT INFORMATION
  Report Type: Spontaneous
  Country: FR (occurrence: FR)
  Receive Date: 20230308
  Receipt Date: 20230324
  Transmission Date: 20230417
  Serious: Yes (Other)
  Sender: FDA-Public Use
  Company Number: FR-PFIZER INC-PV202300031055

PATIENT
  Sex: Female

DRUGS (12)
  1. METHOTREXATE [Suspect]
     Active Substance: METHOTREXATE
     Indication: Crohn^s disease
     Dosage: 10 MILLIGRAM, QW
     Route: 065
  2. METHOTREXATE [Suspect]
     Active Substance: METHOTREXATE
     Indication: Rheumatoid arthritis
  3. INFLIXIMAB [Suspect]
     Active Substance: INFLIXIMAB
     Indication: Crohn^s disease
     Dosage: 400 MILLIGRAM, EVERY 8 WEEKS
     Route: 065
  4. INFLIXIMAB [Suspect]
     Active Substance: INFLIXIMAB
     Indication: Rheumatoid arthritis
  5. INFLECTRA [Suspect]
     Active Substance: INFLIXIMAB-DYYB
     Indication: Crohn^s disease
     Dosage: 400 MILLIGRAM, EVERY 8 WEEKS
     Route: 065
  6. INFLECTRA [Suspect]
     Active Substance: INFLIXIMAB-DYYB
     Indication: Rheumatoid arthritis
     Dosage: 400 MILLIGRAM, CYCLICAL, 400 MG, EVERY 8 WEEKS
     Route: 065
     Dates: start: 201901
  7. FOLIC ACID [Concomitant]
     Active Substance: FOLIC ACID
     Dosage: 2 DOSAGE FORM, QW, QWEEK
     Route: 065
  8. ATENOLOL [Concomitant]
     Active Substance: ATENOLOL
     Dosage: 50 MILLIGRAM, QD
     Route: 065
  9. XARELTO [Concomitant]
     Active Substance: RIVAROXABAN
     Dosage: 10 MILLIGRAM, QD
     Route: 065
  10. IRBESARTAN [Concomitant]
     Active Substance: IRBESARTAN
     Dosage: 150 MILLIGRAM, ~150 MG
     Route: 065
  11. ALDACTONE [Concomitant]
     Active Substance: SPIRONOLACTONE
     Dosage: 25 MILLIGRAM, QD
     Route: 065
  12. OXAZEPAM [Concomitant]
     Active Substance: OXAZEPAM
     Dosage: 10 MILLIGRAM, QD
     Route: 065

REACTIONS (1)
  - Cervical dysplasia [Unknown]
